FAERS Safety Report 24975995 (Version 3)
Quarter: 2025Q1

REPORT INFORMATION
  Report Type: Spontaneous
  Country: US (occurrence: US)
  Receive Date: 20250217
  Receipt Date: 20250312
  Transmission Date: 20250409
  Serious: Yes (Other)
  Sender: ROCHE
  Company Number: US-ROCHE-10000203716

PATIENT
  Age: 35 Year
  Sex: Female
  Weight: 52.16 kg

DRUGS (11)
  1. XOLAIR [Suspect]
     Active Substance: OMALIZUMAB
     Indication: Idiopathic urticaria
     Dosage: STRENGTH: 300MG/2ML
     Route: 058
     Dates: start: 202409
  2. XOLAIR [Suspect]
     Active Substance: OMALIZUMAB
     Indication: Asthma
     Dosage: STRENGTH: 300MG/2ML
     Route: 058
     Dates: start: 20240715
  3. DOXEPIN [Concomitant]
     Active Substance: DOXEPIN
     Indication: Mast cell activation syndrome
     Route: 048
     Dates: start: 20241123, end: 20250218
  4. MESTINON [Concomitant]
     Active Substance: PYRIDOSTIGMINE BROMIDE
     Indication: Mast cell activation syndrome
     Route: 048
     Dates: start: 20241123, end: 20250218
  5. KETOTIFEN [Concomitant]
     Active Substance: KETOTIFEN
     Indication: Mast cell activation syndrome
     Route: 048
     Dates: start: 20240619, end: 20250218
  6. HYDROXYZINE [Concomitant]
     Active Substance: HYDROXYZINE HYDROCHLORIDE
     Indication: Idiopathic urticaria
     Route: 048
     Dates: start: 20240619, end: 20250218
  7. GLEEVEC [Concomitant]
     Active Substance: IMATINIB MESYLATE
     Indication: Mast cell activation syndrome
     Route: 048
     Dates: start: 20240619, end: 20250218
  8. SINGULAIR [Concomitant]
     Active Substance: MONTELUKAST SODIUM
     Indication: Asthma
     Dosage: WAS TAKEN AT NIGHT
     Route: 048
     Dates: start: 20240313, end: 20250218
  9. SINGULAIR [Concomitant]
     Active Substance: MONTELUKAST SODIUM
     Dosage: TAKEN AT NIGHT
     Route: 048
     Dates: start: 20250218
  10. NAPROXEN [Concomitant]
     Active Substance: NAPROXEN
     Indication: Mast cell activation syndrome
     Route: 048
     Dates: start: 20240218
  11. NAPROXEN [Concomitant]
     Active Substance: NAPROXEN
     Indication: Postural orthostatic tachycardia syndrome

REACTIONS (9)
  - Needle issue [Unknown]
  - Product dose omission issue [Unknown]
  - Anaphylactic reaction [Unknown]
  - Scratch [Not Recovered/Not Resolved]
  - Accidental exposure to product [Unknown]
  - Hypersensitivity [Unknown]
  - Device defective [Unknown]
  - Headache [Recovered/Resolved]
  - Urticaria [Not Recovered/Not Resolved]

NARRATIVE: CASE EVENT DATE: 20240809
